FAERS Safety Report 25988880 (Version 1)
Quarter: 2025Q4

REPORT INFORMATION
  Report Type: Spontaneous
  Country: US (occurrence: US)
  Receive Date: 20251103
  Receipt Date: 20251103
  Transmission Date: 20260118
  Serious: No
  Sender: RIGEL PHARMACEUTICALS
  Company Number: US-RIGEL Pharmaceuticals, INC-20250700254

PATIENT
  Age: 60 Year
  Sex: Male

DRUGS (2)
  1. GAVRETO [Suspect]
     Active Substance: PRALSETINIB
     Indication: Neuroendocrine tumour
     Dosage: 300 MG DAILY
     Route: 048
     Dates: start: 20240802
  2. GAVRETO [Suspect]
     Active Substance: PRALSETINIB
     Indication: Carcinoid tumour

REACTIONS (3)
  - Hypoacusis [Unknown]
  - Off label use [Unknown]
  - Product prescribing issue [Unknown]

NARRATIVE: CASE EVENT DATE: 20240802
